FAERS Safety Report 8311332-9 (Version None)
Quarter: 2012Q2

REPORT INFORMATION
  Report Type: 
  Country: None (occurrence: None)
  Receive Date: 20120425
  Receipt Date: 20120413
  Transmission Date: 20120825
  Serious: Yes (Hospitalization, Disabling)
  Sender: FDA-Public Use
  Company Number: JP-GLAXOSMITHKLINE-B0796377A

PATIENT
  Sex: Female

DRUGS (3)
  1. LAMICTAL [Suspect]
     Indication: BIPOLAR I DISORDER
     Dosage: 25MG PER DAY
     Route: 048
     Dates: start: 20120309, end: 20120322
  2. LAMICTAL [Suspect]
     Dosage: 50MG PER DAY
     Route: 048
     Dates: start: 20120323, end: 20120402
  3. CLONAZEPAM [Concomitant]
     Indication: MOOD SWINGS
     Dosage: 1MG PER DAY
     Route: 048
     Dates: start: 20120224, end: 20120308

REACTIONS (8)
  - OCCULT BLOOD POSITIVE [None]
  - TOXIC SKIN ERUPTION [None]
  - ORAL MUCOSAL ERYTHEMA [None]
  - EOSINOPHIL COUNT INCREASED [None]
  - C-REACTIVE PROTEIN INCREASED [None]
  - GASTROINTESTINAL HAEMORRHAGE [None]
  - ORAL MUCOSA EROSION [None]
  - EOSINOPHIL PERCENTAGE INCREASED [None]
